FAERS Safety Report 4588538-8 (Version None)
Quarter: 2005Q1

REPORT INFORMATION
  Report Type: 
  Country: None (occurrence: None)
  Receive Date: 20050222
  Receipt Date: 20041214
  Transmission Date: 20050727
  Serious: Yes (Hospitalization)
  Sender: FDA-Public Use
  Company Number: 200413923JP

PATIENT
  Age: 16 Year
  Sex: Female
  Weight: 48 kg

DRUGS (5)
  1. KETEK [Suspect]
     Indication: PNEUMONIA
     Route: 048
     Dates: start: 20041128, end: 20041130
  2. CALONAL [Suspect]
     Indication: PNEUMONIA
     Route: 048
     Dates: start: 20041128, end: 20041130
  3. SELBEX [Suspect]
     Indication: PNEUMONIA
     Route: 048
     Dates: start: 20041128, end: 20041130
  4. MINOCYCLINE HCL [Concomitant]
     Indication: PNEUMONIA
     Route: 041
     Dates: start: 20041130, end: 20041213
  5. UNASYN ORAL SUSPENSION [Concomitant]
     Indication: PNEUMONIA
     Route: 041
     Dates: start: 20041130, end: 20041206

REACTIONS (13)
  - BACTERIAL INFECTION [None]
  - BLOOD DISORDER [None]
  - BONE MARROW DEPRESSION [None]
  - COLD AGGLUTININS POSITIVE [None]
  - GRAM STAIN POSITIVE [None]
  - LEUKOPENIA [None]
  - LYMPHOCYTE STIMULATION TEST POSITIVE [None]
  - NEUTROPENIA [None]
  - PNEUMONIA MYCOPLASMAL [None]
  - RED BLOOD CELL SEDIMENTATION RATE INCREASED [None]
  - REFUSAL OF TREATMENT BY PATIENT [None]
  - TRANSAMINASES INCREASED [None]
  - WHITE BLOOD CELL COUNT INCREASED [None]
